FAERS Safety Report 24043301 (Version 8)
Quarter: 2025Q3

REPORT INFORMATION
  Report Type: Report from Study
  Country: CA (occurrence: CA)
  Receive Date: 20240702
  Receipt Date: 20250908
  Transmission Date: 20251020
  Serious: Yes (Hospitalization, Other)
  Sender: TAKEDA
  Company Number: CA-TAKEDA-2024TUS001191

PATIENT
  Sex: Female

DRUGS (2)
  1. VEDOLIZUMAB [Suspect]
     Active Substance: VEDOLIZUMAB
     Indication: Crohn^s disease
  2. METRONIDAZOLE [Concomitant]
     Active Substance: METRONIDAZOLE

REACTIONS (12)
  - Large intestinal stenosis [Unknown]
  - Hernia [Recovering/Resolving]
  - Drug ineffective [Unknown]
  - Diversion proctitis [Unknown]
  - Diarrhoea [Unknown]
  - Faeces soft [Unknown]
  - Abdominal mass [Unknown]
  - Abdominal tenderness [Unknown]
  - Fistula [Recovered/Resolved]
  - Abdominal pain [Unknown]
  - Malaise [Unknown]
  - Blood pressure increased [Recovering/Resolving]
